FAERS Safety Report 8361971-4 (Version None)
Quarter: 2012Q2

REPORT INFORMATION
  Report Type: 
  Country: None (occurrence: None)
  Receive Date: 20120515
  Receipt Date: 20120507
  Transmission Date: 20120825
  Serious: Yes (Hospitalization)
  Sender: FDA-Public Use
  Company Number: US-ACTELION-A-US2008-20483

PATIENT

DRUGS (6)
  1. FUROSEMIDE [Concomitant]
  2. MULTI-VITAMIN [Concomitant]
  3. DIOVAN [Concomitant]
  4. TRACLEER [Suspect]
     Indication: PULMONARY ARTERIAL HYPERTENSION
     Dosage: 125 MG, BID
     Route: 048
     Dates: start: 20080409
  5. ASPIRIN [Concomitant]
  6. CALCIUM CHANNEL BLOCKERS [Concomitant]

REACTIONS (17)
  - ALOPECIA [None]
  - BLOOD POTASSIUM DECREASED [None]
  - MALAISE [None]
  - FLUID OVERLOAD [None]
  - SENSATION OF HEAVINESS [None]
  - UPPER-AIRWAY COUGH SYNDROME [None]
  - SINUSITIS [None]
  - TRICHORRHEXIS [None]
  - BLOOD PRESSURE INCREASED [None]
  - ARTHRALGIA [None]
  - OXYGEN SATURATION DECREASED [None]
  - BURNING SENSATION [None]
  - FATIGUE [None]
  - PAIN IN EXTREMITY [None]
  - HAIR DISORDER [None]
  - OEDEMA PERIPHERAL [None]
  - MUSCLE SPASMS [None]
